FAERS Safety Report 10551059 (Version 2)
Quarter: 2015Q1

REPORT INFORMATION
  Report Type: Spontaneous
  Country: US (occurrence: None)
  Receive Date: 20141020
  Receipt Date: 20150120
  Transmission Date: 20150720
  Serious: No
  Sender: FDA-Public Use
  Company Number: AEGR000732

PATIENT
  Age: 37 Year
  Sex: Female
  Weight: 80.7 kg

DRUGS (1)
  1. JUXTAPID [Suspect]
     Active Substance: LOMITAPIDE MESYLATE
     Indication: TYPE IIA HYPERLIPIDAEMIA
     Route: 048
     Dates: start: 20140815

REACTIONS (3)
  - Diarrhoea [None]
  - Urinary tract infection [None]
  - Abdominal pain [None]
